FAERS Safety Report 5277684-1 (Version None)
Quarter: 2007Q1

REPORT INFORMATION
  Report Type: 
  Country: None (occurrence: None)
  Receive Date: 20061213
  Receipt Date: 20040630
  Transmission Date: 20070707
  Serious: No
  Sender: FDA-Public Use
  Company Number: 2004UW13542

PATIENT
  Sex: Female

DRUGS (4)
  1. SEROQUEL [Suspect]
     Indication: INSOMNIA
     Dosage: 25 MG HS PO
     Route: 048
  2. EFFEXOR [Concomitant]
  3. AMBIEN [Concomitant]
  4. SONATA [Concomitant]

REACTIONS (1)
  - EXTRAPYRAMIDAL DISORDER [None]
